FAERS Safety Report 11837844 (Version 2)
Quarter: 2016Q1

REPORT INFORMATION
  Report Type: Report from Study
  Country: FR (occurrence: FR)
  Receive Date: 20151215
  Receipt Date: 20160324
  Transmission Date: 20160525
  Serious: Yes (Congenital Anomaly)
  Sender: FDA-Public Use
  Company Number: FR-UCBSA-2015040220

PATIENT

DRUGS (1)
  1. LEVETIRACETAM. [Suspect]
     Active Substance: LEVETIRACETAM
     Indication: EPILEPSY
     Dosage: UNKNOWN DOSE
     Route: 064

REACTIONS (4)
  - Developmental delay [Unknown]
  - Psychomotor hyperactivity [Unknown]
  - Foetal exposure during pregnancy [Unknown]
  - Disturbance in attention [Unknown]
